FAERS Safety Report 8298851-9 (Version None)
Quarter: 2012Q2

REPORT INFORMATION
  Report Type: 
  Country: None (occurrence: None)
  Receive Date: 20120419
  Receipt Date: 20120404
  Transmission Date: 20120825
  Serious: Yes (Hospitalization, Other)
  Sender: FDA-Public Use
  Company Number: US-WATSON-2012-05838

PATIENT
  Age: 29 Year
  Sex: Male

DRUGS (2)
  1. IBUPROFEN [Suspect]
     Indication: TENSION HEADACHE
  2. IBUPROFEN [Suspect]
     Indication: PAIN
     Dosage: 600 MG, DAILY
     Route: 065

REACTIONS (1)
  - VANISHING BILE DUCT SYNDROME [None]
